FAERS Safety Report 23262063 (Version 1)
Quarter: 2023Q4

REPORT INFORMATION
  Report Type: Spontaneous
  Country: US (occurrence: US)
  Receive Date: 20231205
  Receipt Date: 20231205
  Transmission Date: 20240109
  Serious: Yes (Death, Other)
  Sender: FDA-Public Use
  Company Number: US-REGENERON PHARMACEUTICALS, INC.-2023-147053

PATIENT
  Age: 74 Year
  Sex: Male

DRUGS (1)
  1. EYLEA HD [Suspect]
     Active Substance: AFLIBERCEPT
     Indication: Product used for unknown indication
     Dosage: FORMULAION: HD VIAL
     Dates: start: 2023, end: 202310

REACTIONS (2)
  - Myocardial infarction [Fatal]
  - Adverse event [Unknown]

NARRATIVE: CASE EVENT DATE: 20230101
